FAERS Safety Report 23010532 (Version 2)
Quarter: 2025Q3

REPORT INFORMATION
  Report Type: Report from Study
  Country: BR (occurrence: BR)
  Receive Date: 20230929
  Receipt Date: 20250716
  Transmission Date: 20251020
  Serious: Yes (Hospitalization, Other)
  Sender: NOVARTIS
  Company Number: BR-002147023-NVSC2023BR143316

PATIENT
  Sex: Female

DRUGS (7)
  1. COSENTYX [Suspect]
     Active Substance: SECUKINUMAB
     Indication: Psoriatic arthropathy
     Dosage: 1 DOSAGE FORM, QW (FIRST LOADING DOSE)
     Route: 065
     Dates: start: 20230817
  2. COSENTYX [Suspect]
     Active Substance: SECUKINUMAB
     Dosage: 1 DOSAGE FORM, QW (SECOND LOADING DOSE)
     Route: 065
  3. COSENTYX [Suspect]
     Active Substance: SECUKINUMAB
     Dosage: 1 DOSAGE FORM, QW (THIRD LOADING DOSE)
     Route: 065
  4. COSENTYX [Suspect]
     Active Substance: SECUKINUMAB
     Dosage: 1 DOSAGE FORM, QW (FOURTH LOADING DOSE)
     Route: 065
  5. COSENTYX [Suspect]
     Active Substance: SECUKINUMAB
     Dosage: 1 DOSAGE FORM, QW (FIFTH LOADING DOSE)
     Route: 065
     Dates: end: 20230913
  6. COSENTYX [Suspect]
     Active Substance: SECUKINUMAB
     Route: 065
  7. TRAMADOL [Concomitant]
     Active Substance: TRAMADOL
     Indication: Product used for unknown indication
     Route: 058

REACTIONS (10)
  - Influenza [Recovered/Resolved]
  - Pyrexia [Recovered/Resolved]
  - Pulmonary congestion [Recovered/Resolved]
  - Emphysema [Recovered/Resolved]
  - COVID-19 [Unknown]
  - Epilepsy [Unknown]
  - Decreased immune responsiveness [Unknown]
  - Ear discomfort [Recovered/Resolved]
  - Product prescribing error [Unknown]
  - Therapeutic product effect incomplete [Unknown]

NARRATIVE: CASE EVENT DATE: 20230101
